FAERS Safety Report 6213336-9 (Version None)
Quarter: 2009Q2

REPORT INFORMATION
  Report Type: 
  Country: None (occurrence: None)
  Receive Date: 20090601
  Receipt Date: 20090601
  Transmission Date: 20091009
  Serious: Yes (Life-Threatening)
  Sender: FDA-Public Use
  Company Number: None

PATIENT
  Age: 89 Year
  Sex: Female
  Weight: 56.4 kg

DRUGS (1)
  1. XANAX [Suspect]
     Indication: SEDATIVE THERAPY
     Dosage: XANAX 0.25MG BID PO
     Route: 048
     Dates: start: 20090530

REACTIONS (1)
  - SEDATION [None]
